FAERS Safety Report 18351609 (Version 6)
Quarter: 2021Q1

REPORT INFORMATION
  Report Type: Spontaneous
  Country: US (occurrence: US)
  Receive Date: 20201007
  Receipt Date: 20210112
  Transmission Date: 20210419
  Serious: Yes (Other)
  Sender: FDA-Public Use
  Company Number: US-GLAXOSMITHKLINE-US2020AMR197782

PATIENT
  Sex: Female

DRUGS (2)
  1. ZEJULA [Suspect]
     Active Substance: NIRAPARIB
     Dosage: 100 MG, QD
     Dates: start: 20200928
  2. ZEJULA [Suspect]
     Active Substance: NIRAPARIB
     Indication: FALLOPIAN TUBE CANCER
     Dosage: 200 MG, QD
     Dates: start: 20200925

REACTIONS (13)
  - Hypothyroidism [Unknown]
  - Product dose omission issue [Unknown]
  - Arrhythmia [Unknown]
  - Headache [Recovered/Resolved]
  - Hypertension [Recovering/Resolving]
  - Nausea [Recovered/Resolved]
  - Tachycardia [Unknown]
  - Pruritus [Recovered/Resolved]
  - Constipation [Unknown]
  - Heart rate increased [Recovering/Resolving]
  - Heart rate irregular [Recovering/Resolving]
  - Adverse drug reaction [Recovered/Resolved]
  - Dizziness [Recovered/Resolved]
